FAERS Safety Report 10631627 (Version 1)
Quarter: 2014Q4

REPORT INFORMATION
  Report Type: Report from Study
  Country: JP (occurrence: JP)
  Receive Date: 20141205
  Receipt Date: 20141205
  Transmission Date: 20150529
  Serious: Yes (Death)
  Sender: FDA-Public Use
  Company Number: PHHY2014JP153295

PATIENT
  Age: 23 Year
  Sex: Female

DRUGS (7)
  1. CERTICAN [Suspect]
     Active Substance: EVEROLIMUS
     Indication: LUNG TRANSPLANT
     Dosage: 1 MG, UNK
     Route: 048
     Dates: start: 20100526
  2. CERTICAN [Suspect]
     Active Substance: EVEROLIMUS
     Dosage: 0.5 MG, UNK
     Route: 048
     Dates: start: 20110212, end: 20110217
  3. CERTICAN [Suspect]
     Active Substance: EVEROLIMUS
     Indication: OFF LABEL USE
     Dosage: 1.5 MG, UNK
     Route: 048
     Dates: start: 20100601, end: 20110210
  4. CERTICAN [Suspect]
     Active Substance: EVEROLIMUS
     Dosage: 1 MG, UNK
     Route: 048
     Dates: start: 20110218, end: 20110301
  5. CERTICAN [Suspect]
     Active Substance: EVEROLIMUS
     Dosage: 0.5 MG, UNK
     Route: 048
     Dates: start: 20110304
  6. MYCOPHENOLATE MOFETIL. [Concomitant]
     Active Substance: MYCOPHENOLATE MOFETIL
     Dosage: 1000 MG, UNK
     Route: 048
  7. MYCOPHENOLATE MOFETIL. [Concomitant]
     Active Substance: MYCOPHENOLATE MOFETIL
     Indication: LUNG TRANSPLANT
     Dosage: 750 MG, UNK
     Route: 048

REACTIONS (5)
  - Hyperlipidaemia [Not Recovered/Not Resolved]
  - Neutrophil count increased [Unknown]
  - Disease recurrence [Fatal]
  - Lymphoma [Fatal]
  - Pneumonia [Fatal]

NARRATIVE: CASE EVENT DATE: 20100609
